FAERS Safety Report 5167660-1 (Version None)
Quarter: 2006Q4

REPORT INFORMATION
  Report Type: 
  Country: None (occurrence: None)
  Receive Date: 20061204
  Receipt Date: 20061204
  Transmission Date: 20070319
  Serious: Yes (Other)
  Sender: FDA-Public Use
  Company Number: None

PATIENT
  Sex: Male
  Weight: 83.9154 kg

DRUGS (2)
  1. CRESTOR [Suspect]
     Indication: BLOOD CHOLESTEROL
     Dates: start: 20060615, end: 20060901
  2. CRESTOR [Suspect]
     Indication: BLOOD TRIGLYCERIDES
     Dates: start: 20060615, end: 20060901

REACTIONS (13)
  - ARTHRALGIA [None]
  - BONE PAIN [None]
  - COGNITIVE DISORDER [None]
  - DISTURBANCE IN ATTENTION [None]
  - FATIGUE [None]
  - HEADACHE [None]
  - LIBIDO DECREASED [None]
  - MALAISE [None]
  - MEMORY IMPAIRMENT [None]
  - MUSCLE SPASMS [None]
  - MYALGIA [None]
  - PALPITATIONS [None]
  - VISION BLURRED [None]
